FAERS Safety Report 7307616-3 (Version None)
Quarter: 2011Q1

REPORT INFORMATION
  Report Type: 
  Country: None (occurrence: None)
  Receive Date: 20110210
  Receipt Date: 20110204
  Transmission Date: 20110831
  Serious: Yes (Disabling, Other)
  Sender: FDA-Public Use
  Company Number: 2011MA001062

PATIENT

DRUGS (1)
  1. METOCLOPRAMIDE [Suspect]
     Indication: GASTROINTESTINAL DISORDER

REACTIONS (8)
  - ANXIETY [None]
  - LOSS OF EMPLOYMENT [None]
  - EXTRAPYRAMIDAL DISORDER [None]
  - ECONOMIC PROBLEM [None]
  - MULTIPLE INJURIES [None]
  - SOCIAL PROBLEM [None]
  - PAIN [None]
  - TARDIVE DYSKINESIA [None]
